FAERS Safety Report 22386181 (Version 1)
Quarter: 2023Q2

REPORT INFORMATION
  Report Type: Spontaneous
  Country: US (occurrence: US)
  Receive Date: 20230530
  Receipt Date: 20230530
  Transmission Date: 20230722
  Serious: No
  Sender: FDA-Public Use
  Company Number: US-BRISTOL-MYERS SQUIBB COMPANY-2023-075064

PATIENT
  Age: 59 Year
  Sex: Female
  Weight: 108.32 kg

DRUGS (1)
  1. REVLIMID [Suspect]
     Active Substance: LENALIDOMIDE
     Indication: Plasma cell myeloma
     Dosage: FREQUENCY-2W ON 1W OFF
     Route: 048
     Dates: start: 20220801

REACTIONS (2)
  - Nausea [Not Recovered/Not Resolved]
  - Off label use [Unknown]
